FAERS Safety Report 9197689 (Version 1)
Quarter: 2013Q1

REPORT INFORMATION
  Report Type: Spontaneous
  Country: US (occurrence: US)
  Receive Date: 20130328
  Receipt Date: 20130328
  Transmission Date: 20140127
  Serious: No
  Sender: FDA-Public Use
  Company Number: US-ASTRAZENECA-2013SE18327

PATIENT
  Sex: Male

DRUGS (4)
  1. SYMBICORT [Suspect]
     Dosage: ONCE A WEEK
     Route: 055
  2. SYMBICORT [Suspect]
     Dosage: TWICE A WEEK
     Route: 055
  3. SYMBICORT [Suspect]
     Dosage: 1 PUFF BID
     Route: 055
  4. SYMBICORT [Suspect]
     Dosage: UNKNOWN PRN
     Route: 055

REACTIONS (3)
  - Eye disorder [Unknown]
  - Disturbance in attention [Unknown]
  - Off label use [Unknown]
